FAERS Safety Report 5588649-4 (Version None)
Quarter: 2007Q4

REPORT INFORMATION
  Report Type: 
  Country: None (occurrence: None)
  Receive Date: 20071212
  Receipt Date: 20071022
  Transmission Date: 20080405
  Serious: No
  Sender: FDA-Public Use
  Company Number: 2007RL000472

PATIENT
  Age: 57 Year
  Sex: Female

DRUGS (5)
  1. LOVAZA [Suspect]
     Indication: BLOOD TRIGLYCERIDES INCREASED
     Dosage: 2 GM;BID;PO ; 1 GM;BID;PO
     Route: 048
     Dates: start: 20070901, end: 20071001
  2. LOVAZA [Suspect]
     Indication: BLOOD TRIGLYCERIDES INCREASED
     Dosage: 2 GM;BID;PO ; 1 GM;BID;PO
     Route: 048
     Dates: start: 20071001
  3. PROZAC [Concomitant]
  4. LIPITOR [Concomitant]
  5. ZETIA [Concomitant]

REACTIONS (3)
  - DYSPNOEA [None]
  - FATIGUE [None]
  - MYALGIA [None]
